FAERS Safety Report 9902957 (Version 1)
Quarter: 2014Q1

REPORT INFORMATION
  Report Type: Spontaneous
  Country: AT (occurrence: AT)
  Receive Date: 20140217
  Receipt Date: 20140217
  Transmission Date: 20141002
  Serious: Yes (Death, Hospitalization)
  Sender: FDA-Public Use
  Company Number: PHHY2014AT015026

PATIENT
  Age: 71 Year
  Sex: Female

DRUGS (4)
  1. 5-FLUOROURACIL [Suspect]
     Indication: BREAST CANCER
  2. DOCETAXEL [Suspect]
     Indication: BREAST CANCER
  3. EPIRUBICIN [Suspect]
     Indication: BREAST CANCER
  4. CYCLOPHOSPHAMIDE [Suspect]
     Indication: BREAST CANCER

REACTIONS (7)
  - Death [Fatal]
  - Pneumonia cytomegaloviral [Unknown]
  - Pleural effusion [Unknown]
  - Lung infiltration [Unknown]
  - Respiratory disorder [Unknown]
  - Febrile neutropenia [Unknown]
  - Epstein-Barr virus infection [Unknown]
